FAERS Safety Report 8428224-7 (Version None)
Quarter: 2012Q2

REPORT INFORMATION
  Report Type: 
  Country: None (occurrence: None)
  Receive Date: 20120611
  Receipt Date: 20120608
  Transmission Date: 20120825
  Serious: Yes (Hospitalization)
  Sender: FDA-Public Use
  Company Number: PHHY2012FR041059

PATIENT
  Age: 87 Year
  Sex: Male

DRUGS (7)
  1. ROCURONIUM BROMIDE [Suspect]
     Indication: ANAESTHESIA
     Dosage: 0.9 MG/KG
  2. ACETAMINOPHEN [Concomitant]
     Dosage: 1 G, UNK
  3. AMOXICILLIN AND CLAVULANATE POTASSIUM [Concomitant]
  4. SUFENTANIL CITRATE [Concomitant]
     Indication: MAINTENANCE OF ANAESTHESIA
  5. ETOMIDATE [Concomitant]
     Indication: ANAESTHESIA
     Dosage: 0.4 MG/KG, UNK
  6. SEVOFLURANE [Concomitant]
     Indication: MAINTENANCE OF ANAESTHESIA
  7. TRAMADOL HCL [Concomitant]
     Dosage: 100 MG, UNK

REACTIONS (3)
  - ATRIAL FIBRILLATION [None]
  - RED BLOOD CELL COUNT DECREASED [None]
  - NEUROMUSCULAR BLOCKADE [None]
